FAERS Safety Report 4705886-9 (Version None)
Quarter: 2005Q2

REPORT INFORMATION
  Report Type: 
  Country: None (occurrence: None)
  Receive Date: 20050629
  Receipt Date: 20050420
  Transmission Date: 20051028
  Serious: No
  Sender: FDA-Public Use
  Company Number: 05P-163-0297978-00

PATIENT
  Age: 75 Year
  Sex: Male
  Weight: 93.8946 kg

DRUGS (6)
  1. HUMIRA [Suspect]
     Indication: RHEUMATOID ARTHRITIS
     Dosage: 40 MG, 1 IN 2 WK, SUBCUTANEOUS
     Route: 058
     Dates: start: 20040401, end: 20050401
  2. OMEPRAZOLE [Concomitant]
  3. LEVOTHYROXINE SODIUM [Concomitant]
  4. LATANOPROST [Concomitant]
  5. ASPIRIN [Concomitant]
  6. METHOTREXATE SODIUM [Concomitant]

REACTIONS (1)
  - B-CELL LYMPHOMA [None]
